FAERS Safety Report 13267914 (Version 1)
Quarter: 2017Q1

REPORT INFORMATION
  Report Type: Spontaneous
  Country: US (occurrence: US)
  Receive Date: 20170224
  Receipt Date: 20170224
  Transmission Date: 20170428
  Serious: No
  Sender: FDA-Public Use
  Company Number: US-TEVA-742630ACC

PATIENT
  Sex: Female

DRUGS (4)
  1. COPAXONE [Suspect]
     Active Substance: GLATIRAMER ACETATE
     Indication: MULTIPLE SCLEROSIS
     Route: 058
     Dates: start: 20080617
  2. BACLOFEN. [Concomitant]
     Active Substance: BACLOFEN
  3. MODAFINIL. [Concomitant]
     Active Substance: MODAFINIL
  4. TOLTERODINE [Concomitant]
     Active Substance: TOLTERODINE

REACTIONS (1)
  - Flushing [Not Recovered/Not Resolved]
